FAERS Safety Report 18690278 (Version 1)
Quarter: 2020Q4

REPORT INFORMATION
  Report Type: Spontaneous
  Country: US (occurrence: US)
  Receive Date: 20201231
  Receipt Date: 20201231
  Transmission Date: 20210114
  Serious: Yes (Other)
  Sender: FDA-Public Use
  Company Number: US-MALLINCKRODT-T202005057

PATIENT
  Age: 58 Year
  Sex: Male
  Weight: 90 kg

DRUGS (3)
  1. UVADEX [Suspect]
     Active Substance: METHOXSALEN
     Indication: GRAFT VERSUS HOST DISEASE
     Dosage: UNK (EXTRACORPOREAL)
     Route: 050
     Dates: start: 20201007, end: 20201009
  2. UVADEX [Suspect]
     Active Substance: METHOXSALEN
     Dosage: UNK (EXTRACORPOREAL)
     Route: 050
     Dates: start: 20201209
  3. HEPARIN [Concomitant]
     Active Substance: HEPARIN SODIUM
     Indication: ANTICOAGULANT THERAPY
     Dosage: 10,000 UNITS/500 ML
     Route: 065
     Dates: start: 202010

REACTIONS (3)
  - Cataract [Not Recovered/Not Resolved]
  - Product use in unapproved indication [Unknown]
  - Dry eye [Not Recovered/Not Resolved]

NARRATIVE: CASE EVENT DATE: 2020
